FAERS Safety Report 11245147 (Version 1)
Quarter: 2015Q3

REPORT INFORMATION
  Report Type: Spontaneous
  Country: DE (occurrence: DE)
  Receive Date: 20150707
  Receipt Date: 20150707
  Transmission Date: 20151125
  Serious: Yes (Other)
  Sender: FDA-Public Use
  Company Number: DE-BAXTER-2015BAX036224

PATIENT
  Age: 41 Year
  Sex: Female
  Weight: 67 kg

DRUGS (1)
  1. ENDOXAN 1G [Suspect]
     Active Substance: CYCLOPHOSPHAMIDE
     Indication: BREAST CANCER
     Route: 040
     Dates: start: 20150616

REACTIONS (8)
  - Cold sweat [Recovered/Resolved]
  - Tachycardia [Recovered/Resolved]
  - Cardiovascular disorder [Recovered/Resolved]
  - Pallor [Recovered/Resolved]
  - Feeling hot [Recovered/Resolved]
  - Infusion related reaction [Recovered/Resolved]
  - Rash pruritic [Recovered/Resolved]
  - Asthenia [Recovered/Resolved]

NARRATIVE: CASE EVENT DATE: 20150616
